FAERS Safety Report 4954421-9 (Version None)
Quarter: 2006Q1

REPORT INFORMATION
  Report Type: 
  Country: None (occurrence: None)
  Receive Date: 20060322
  Receipt Date: 20060314
  Transmission Date: 20060701
  Serious: Yes (Death, Hospitalization)
  Sender: FDA-Public Use
  Company Number: ZONI002283

PATIENT
  Age: 73 Year
  Sex: Male

DRUGS (6)
  1. ZONISAMIDE [Suspect]
     Indication: EPILEPSY
     Dosage: 200 MG, 2 IN 1 D, ORAL
     Route: 048
     Dates: start: 20060125, end: 20060224
  2. LEVOFLOXACIN [Suspect]
     Indication: UPPER RESPIRATORY TRACT INFLAMMATION
     Dosage: 200 MG, 2 IN 1 D, ORAL
     Route: 048
     Dates: start: 20060219, end: 20060220
  3. AMLODIPINE BESYLATE [Concomitant]
  4. DIAZEPAM [Concomitant]
  5. TOCLASE (PENTOXYVERINE CITRATE) [Concomitant]
  6. PREDNISOLONE [Concomitant]

REACTIONS (8)
  - CARDIAC ARREST [None]
  - DIARRHOEA [None]
  - DRUG HYPERSENSITIVITY [None]
  - ENTEROCOLITIS HAEMORRHAGIC [None]
  - ERYTHEMA MULTIFORME [None]
  - HYPOALBUMINAEMIA [None]
  - NASOPHARYNGITIS [None]
  - RESPIRATORY FAILURE [None]
